FAERS Safety Report 22016604 (Version 1)
Quarter: 2023Q1

REPORT INFORMATION
  Report Type: Spontaneous
  Country: FR (occurrence: FR)
  Receive Date: 20230221
  Receipt Date: 20230221
  Transmission Date: 20230417
  Serious: Yes (Other)
  Sender: FDA-Public Use
  Company Number: None

PATIENT
  Age: 76 Year
  Sex: Male

DRUGS (2)
  1. TRAMADOL [Suspect]
     Active Substance: TRAMADOL
     Indication: Product used for unknown indication
     Dosage: 6 DOSAGE FORM,QD (6 TABLETS/DAY(225 MG TRAMADOL
     Route: 048
     Dates: start: 201505
  2. ACETAMINOPHEN [Suspect]
     Active Substance: ACETAMINOPHEN
     Indication: Product used for unknown indication
     Dosage: 6 DOSAGEFORM,QD (6TABLETS/DAY(1950MG PARACETAMOL
     Route: 048
     Dates: start: 201505

REACTIONS (1)
  - Drug use disorder [Not Recovered/Not Resolved]
